FAERS Safety Report 20741160 (Version 3)
Quarter: 2022Q2

REPORT INFORMATION
  Report Type: Spontaneous
  Country: US (occurrence: US)
  Receive Date: 20220422
  Receipt Date: 20220608
  Transmission Date: 20220721
  Serious: No
  Sender: FDA-Public Use
  Company Number: US-TEVA-2022-US-2022342

PATIENT
  Age: 80 Year
  Sex: Female

DRUGS (4)
  1. CLONAZEPAM [Suspect]
     Active Substance: CLONAZEPAM
     Indication: Dizziness
     Dates: start: 20170526
  2. CLONAZEPAM [Suspect]
     Active Substance: CLONAZEPAM
     Indication: Vestibular disorder
     Route: 065
  3. CLONAZEPAM [Suspect]
     Active Substance: CLONAZEPAM
  4. XANAX [Concomitant]
     Active Substance: ALPRAZOLAM
     Indication: Palpitations

REACTIONS (8)
  - Adverse drug reaction [Unknown]
  - Vertigo [Unknown]
  - Dizziness [Unknown]
  - Treatment noncompliance [Unknown]
  - Product use in unapproved indication [Unknown]
  - Product prescribing error [Unknown]
  - Product availability issue [Unknown]
  - Drug ineffective [Unknown]

NARRATIVE: CASE EVENT DATE: 20220101
